FAERS Safety Report 7805799-X (Version None)
Quarter: 2011Q4

REPORT INFORMATION
  Report Type: 
  Country: None (occurrence: None)
  Receive Date: 20111011
  Receipt Date: 20111003
  Transmission Date: 20120403
  Serious: No
  Sender: FDA-Public Use
  Company Number: US-BIOGENIDEC-2011BI037895

PATIENT
  Sex: Female

DRUGS (4)
  1. MEDICATION (NOS) [Concomitant]
     Indication: MUSCLE SPASTICITY
  2. TYSABRI [Suspect]
     Indication: MULTIPLE SCLEROSIS
     Route: 042
     Dates: start: 20090715
  3. MEDICATION (NOS) [Concomitant]
     Indication: ANXIETY
  4. AVONEX [Concomitant]
     Indication: MULTIPLE SCLEROSIS
     Route: 030
     Dates: start: 19980101

REACTIONS (1)
  - DRUG INEFFECTIVE [None]
